FAERS Safety Report 8252321 (Version 2)
Quarter: 2012Q4

REPORT INFORMATION
  Report Type: 
  Country: US (occurrence: US)
  Receive Date: 20111117
  Receipt Date: 20121023
  Transmission Date: 20130627
  Serious: No
  Sender: FDA-Public Use
  Company Number: US-AMGEN-USASP2011015831

PATIENT
  Age: 64 Year
  Sex: Male

DRUGS (1)
  1. ENBREL [Suspect]
     Indication: PSORIATIC ARTHROPATHY
     Dosage: 25 mg, 2 times/wk
     Dates: start: 20011101

REACTIONS (3)
  - Nerve compression [Not Recovered/Not Resolved]
  - Skin induration [Not Recovered/Not Resolved]
  - Injection site pain [Unknown]
